FAERS Safety Report 10483859 (Version 1)
Quarter: 2014Q3

REPORT INFORMATION
  Report Type: Spontaneous
  Country: US (occurrence: None)
  Receive Date: 20140929
  Receipt Date: 20140929
  Transmission Date: 20150326
  Serious: Yes (Hospitalization)
  Sender: FDA-Public Use
  Company Number: None

PATIENT
  Age: 60 Year
  Sex: Male
  Weight: 74 kg

DRUGS (4)
  1. 5-FLUOROURACIL (5-FU) [Suspect]
     Active Substance: FLUOROURACIL
     Dosage: CONTINUOUS INFUSION OVER 4 DAYS
     Dates: end: 20140802
  2. OXYCONTIN [Concomitant]
     Active Substance: OXYCODONE HYDROCHLORIDE
  3. GABAPENTIN. [Concomitant]
     Active Substance: GABAPENTIN
  4. CISPLATIN. [Suspect]
     Active Substance: CISPLATIN
     Dates: end: 20140729

REACTIONS (5)
  - Pleural effusion [None]
  - Dyspnoea [None]
  - Confusional state [None]
  - Hypercalcaemia [None]
  - Encephalopathy [None]

NARRATIVE: CASE EVENT DATE: 20140901
